FAERS Safety Report 12100067 (Version 2)
Quarter: 2016Q1

REPORT INFORMATION
  Report Type: Report from Study
  Country: JP (occurrence: JP)
  Receive Date: 20160222
  Receipt Date: 20160302
  Transmission Date: 20160526
  Serious: Yes (Death)
  Sender: FDA-Public Use
  Company Number: JP-009507513-1601JPN007024

PATIENT
  Age: 64 Year
  Sex: Female
  Weight: 50 kg

DRUGS (3)
  1. CUBICIN [Suspect]
     Active Substance: DAPTOMYCIN
     Indication: SEPSIS
     Dosage: 6 MG/KG, QD
     Route: 041
     Dates: start: 20131108, end: 20131112
  2. FUNGUARD [Concomitant]
     Active Substance: MICAFUNGIN SODIUM
     Indication: SEPSIS
     Dosage: 100 MG, QD
     Route: 041
     Dates: start: 20131108, end: 20131112
  3. MEROPEN [Concomitant]
     Active Substance: MEROPENEM
     Indication: SEPSIS
     Dosage: 0.5 G, BID
     Route: 041
     Dates: start: 20131103, end: 20131112

REACTIONS (4)
  - Sepsis [Fatal]
  - Colitis [Fatal]
  - Cholecystitis [Fatal]
  - Drug ineffective [Unknown]

NARRATIVE: CASE EVENT DATE: 20131112
